FAERS Safety Report 7778089-1 (Version None)
Quarter: 2011Q3

REPORT INFORMATION
  Report Type: 
  Country: None (occurrence: None)
  Receive Date: 20110926
  Receipt Date: 20110914
  Transmission Date: 20111222
  Serious: No
  Sender: FDA-Public Use
  Company Number: US-PFIZER INC-2011090598

PATIENT
  Sex: Male
  Weight: 78 kg

DRUGS (17)
  1. GLUCOSAMINE [Concomitant]
     Indication: ARTHRITIS
     Dosage: 500-400 MG
     Route: 048
     Dates: start: 20080517
  2. MOROCTOCOG ALFA [Suspect]
     Dosage: 2060 IU, ON DEMAND
     Route: 042
     Dates: start: 20100620, end: 20100621
  3. AMBIEN [Concomitant]
     Indication: SLEEP DISORDER
     Dosage: 10 MG, 1X/DAY
     Route: 048
     Dates: start: 20061107
  4. EMTRICITABINE [Concomitant]
     Indication: HIV INFECTION
     Dosage: 20 MG, 1X/DAY
     Route: 048
     Dates: start: 20100609
  5. PREZISTA [Concomitant]
     Indication: HIV INFECTION
     Dosage: 400 MG, 1X/DAY
     Route: 048
     Dates: start: 20100609
  6. NORVIR [Concomitant]
     Indication: HIV INFECTION
     Dosage: 100 MG, 1X/DAY
     Route: 048
     Dates: start: 20100609
  7. LORCET-HD [Concomitant]
     Indication: PAIN
     Dosage: UNK
     Route: 048
     Dates: start: 20100217
  8. SUSTIVA [Concomitant]
     Indication: HIV INFECTION
     Dosage: 600 MG, 1X/DAY
     Route: 048
     Dates: start: 20100609
  9. NEURONTIN [Concomitant]
     Indication: PAIN
     Dosage: 100 MG, 1X/DAY
     Route: 048
     Dates: start: 20100602
  10. FISH OIL [Concomitant]
     Indication: MEDICAL DIET
     Dosage: 500 MG, 2X/DAY
     Route: 048
     Dates: start: 20060906
  11. POTASSIUM PHOSPHATES [Concomitant]
     Indication: OSTEOPOROSIS
     Dosage: 305-700 MG EVERY 6 HRS
     Route: 048
     Dates: start: 20100602
  12. MOROCTOCOG ALFA [Suspect]
     Indication: FACTOR VIII DEFICIENCY
     Dosage: 1990 IU (FREQUENCY NOT PROVIDED
     Route: 042
     Dates: start: 20100616
  13. KETOPROFEN [Concomitant]
     Indication: ARTHRITIS
     Dosage: 20 %, 4X/DAY
     Route: 061
     Dates: start: 20090521
  14. OXYCONTIN [Concomitant]
     Indication: PAIN
     Dosage: 20 MG, AS NEEDED
     Route: 048
     Dates: start: 20050612
  15. PERCOCET [Concomitant]
     Indication: PAIN
     Dosage: 10-325 MG
     Route: 048
     Dates: start: 20090225
  16. FLAXSEED OIL [Concomitant]
     Indication: MEDICAL DIET
     Dosage: UNK
     Route: 048
     Dates: start: 20050420
  17. MULTIVITAMIN ^LAPPE^ [Concomitant]
     Indication: MEDICAL DIET
     Dosage: UNK
     Route: 048

REACTIONS (1)
  - NO ADVERSE EVENT [None]
